FAERS Safety Report 6007681-X (Version None)
Quarter: 2008Q4

REPORT INFORMATION
  Report Type: 
  Country: None (occurrence: None)
  Receive Date: 20081217
  Receipt Date: 20080403
  Transmission Date: 20090506
  Serious: No
  Sender: FDA-Public Use
  Company Number: US-ASTRAZENECA-2008UW06704

PATIENT
  Age: 71 Year
  Sex: Male
  Weight: 98 kg

DRUGS (5)
  1. CRESTOR [Suspect]
     Indication: BLOOD CHOLESTEROL INCREASED
     Route: 048
  2. PLAVIX [Concomitant]
  3. ASPIRIN [Concomitant]
  4. ZOLOFT [Concomitant]
  5. XANAX [Concomitant]

REACTIONS (2)
  - ABDOMINAL PAIN [None]
  - CHEST PAIN [None]
